FAERS Safety Report 10393065 (Version 2)
Quarter: 2014Q1

REPORT INFORMATION
  Report Type: Spontaneous
  Country: US (occurrence: None)
  Receive Date: 20120817
  Receipt Date: 20130815
  Transmission Date: 20141002
  Serious: Yes (Hospitalization, Other)
  Sender: FDA-Public Use
  Company Number: ADR-2012-00746

PATIENT
  Sex: Female

DRUGS (2)
  1. BACLOFEN INTRATHECAL (BACLOFEN INJECTION) 1000MCG/ML [Suspect]
     Indication: MUSCLE SPASTICITY
  2. BACLOFEN INTRATHECAL (BACLOFEN INJECTION) 1000MCG/ML [Suspect]
     Indication: SPINAL CORD INJURY

REACTIONS (4)
  - Convulsion [None]
  - Infection [None]
  - White blood cell count abnormal [None]
  - Drug withdrawal syndrome [None]
